FAERS Safety Report 12503222 (Version 1)
Quarter: 2016Q2

REPORT INFORMATION
  Report Type: Report from Study
  Country: BR (occurrence: BR)
  Receive Date: 20160628
  Receipt Date: 20160628
  Transmission Date: 20160815
  Serious: Yes (Other)
  Sender: FDA-Public Use
  Company Number: BR-EMD SERONO-8073937

PATIENT
  Age: 45 Year
  Sex: Female
  Weight: 55 kg

DRUGS (1)
  1. REBIF [Suspect]
     Active Substance: INTERFERON BETA-1A
     Indication: MULTIPLE SCLEROSIS
     Route: 058
     Dates: start: 20150928

REACTIONS (13)
  - Gait disturbance [Unknown]
  - Dizziness [Not Recovered/Not Resolved]
  - Anxiety [Unknown]
  - Dry mouth [Unknown]
  - Balance disorder [Not Recovered/Not Resolved]
  - Psychiatric symptom [Unknown]
  - Confusional state [Unknown]
  - Fatigue [Not Recovered/Not Resolved]
  - Hemiparesis [Not Recovered/Not Resolved]
  - Micturition urgency [Unknown]
  - Nervousness [Not Recovered/Not Resolved]
  - Vision blurred [Unknown]
  - Urinary retention [Unknown]

NARRATIVE: CASE EVENT DATE: 201509
